FAERS Safety Report 16777221 (Version 4)
Quarter: 2019Q4

REPORT INFORMATION
  Report Type: Spontaneous
  Country: US (occurrence: US)
  Receive Date: 20190905
  Receipt Date: 20191004
  Transmission Date: 20200122
  Serious: Yes (Other)
  Sender: FDA-Public Use
  Company Number: US-BIOGEN-2019BI00782292

PATIENT
  Age: 64 Year
  Sex: Male

DRUGS (3)
  1. TECFIDERA [Suspect]
     Active Substance: DIMETHYL FUMARATE
     Route: 048
     Dates: start: 20180907, end: 20181006
  2. TECFIDERA [Suspect]
     Active Substance: DIMETHYL FUMARATE
     Route: 048
     Dates: start: 20181007
  3. TECFIDERA [Suspect]
     Active Substance: DIMETHYL FUMARATE
     Indication: MULTIPLE SCLEROSIS
     Route: 048
     Dates: start: 20180831, end: 20180906

REACTIONS (6)
  - Diarrhoea [Not Recovered/Not Resolved]
  - Obstruction gastric [Recovered/Resolved]
  - Multiple sclerosis [Unknown]
  - Constipation [Recovered/Resolved]
  - Renal disorder [Unknown]
  - Drug intolerance [Unknown]

NARRATIVE: CASE EVENT DATE: 201908
